FAERS Safety Report 4991651-4 (Version None)
Quarter: 2006Q2

REPORT INFORMATION
  Report Type: 
  Country: None (occurrence: None)
  Receive Date: 20060502
  Receipt Date: 20060421
  Transmission Date: 20061013
  Serious: Yes (Other)
  Sender: FDA-Public Use
  Company Number: 2006043406

PATIENT
  Age: 35 Year
  Sex: Male
  Weight: 117 kg

DRUGS (13)
  1. METHYLPREDNISOLONE ACETATE [Suspect]
     Indication: ANAESTHESIA
     Dosage: 80 MG (80 MG, 1 IN 1 D), INTRAVENOUS
     Route: 042
     Dates: start: 20060321, end: 20060321
  2. ONDANSETRON [Concomitant]
  3. CEFUROXIME [Concomitant]
  4. FENTANYL [Concomitant]
  5. PROPOFOL [Concomitant]
  6. ATRACURIUM BESYLATE [Concomitant]
  7. ISOFLURANE [Concomitant]
  8. MORPHINE [Concomitant]
  9. KETOROLAC [Concomitant]
  10. ATROPINE [Concomitant]
  11. PROSTIGMIN         (NEOSTIGMINE BROMIDE) [Concomitant]
  12. XYLOCAINE [Concomitant]
  13. EPINEPHRINE [Concomitant]

REACTIONS (7)
  - ASPARTATE AMINOTRANSFERASE INCREASED [None]
  - BLOOD ALKALINE PHOSPHATASE INCREASED [None]
  - DIZZINESS [None]
  - FEELING HOT [None]
  - INCORRECT ROUTE OF DRUG ADMINISTRATION [None]
  - TACHYCARDIA [None]
  - WRONG DRUG ADMINISTERED [None]
